FAERS Safety Report 12956506 (Version 1)
Quarter: 2016Q4

REPORT INFORMATION
  Report Type: Spontaneous
  Country: US (occurrence: US)
  Receive Date: 20161118
  Receipt Date: 20161118
  Transmission Date: 20170207
  Serious: No
  Sender: FDA-Public Use
  Company Number: US-BRISTOL-MYERS SQUIBB COMPANY-BMS-2016-096517

PATIENT
  Sex: Male

DRUGS (1)
  1. OPDIVO [Suspect]
     Active Substance: NIVOLUMAB
     Indication: PRODUCT USED FOR UNKNOWN INDICATION
     Route: 065

REACTIONS (8)
  - Hypertension [Recovering/Resolving]
  - Decreased appetite [Unknown]
  - Eructation [Unknown]
  - Rhinorrhoea [Unknown]
  - Headache [Unknown]
  - Blood glucose increased [Recovering/Resolving]
  - Abdominal distension [Unknown]
  - Peripheral swelling [Unknown]
